FAERS Safety Report 4832224-3 (Version None)
Quarter: 2005Q4

REPORT INFORMATION
  Report Type: 
  Country: None (occurrence: None)
  Receive Date: 20051118
  Receipt Date: 20051109
  Transmission Date: 20060501
  Serious: Yes (Other)
  Sender: FDA-Public Use
  Company Number: US-MERCK-0511USA01679

PATIENT

DRUGS (1)
  1. HYDRODIURIL [Suspect]
     Route: 048

REACTIONS (9)
  - DERMATITIS BULLOUS [None]
  - ECZEMA [None]
  - ERYTHEMA MULTIFORME [None]
  - LICHENOID KERATOSIS [None]
  - PHOTOSENSITIVITY REACTION [None]
  - RASH MACULO-PAPULAR [None]
  - SYSTEMIC LUPUS ERYTHEMATOSUS [None]
  - URTICARIA [None]
  - VASCULITIS NECROTISING [None]
